FAERS Safety Report 4436339-3 (Version None)
Quarter: 2004Q3

REPORT INFORMATION
  Report Type: 
  Country: None (occurrence: None)
  Receive Date: 20040728
  Receipt Date: 20040224
  Transmission Date: 20050211
  Serious: Yes (Hospitalization)
  Sender: FDA-Public Use
  Company Number: 204774

PATIENT
  Age: 73 Year
  Sex: Female
  Weight: 73.5 kg

DRUGS (13)
  1. RITUXAN [Suspect]
     Indication: LYMPHOMA
     Dosage: MG; 700 MG, SINGLE
     Dates: start: 20030402, end: 20030601
  2. RITUXAN [Suspect]
     Indication: LYMPHOMA
     Dosage: MG; 700 MG, SINGLE
     Dates: start: 20040114, end: 20040114
  3. CYTOXAN [Concomitant]
  4. NOVANTRONE [Concomitant]
  5. LOPRESSOR [Concomitant]
  6. PLAVIX [Concomitant]
  7. LASIX [Concomitant]
  8. ZOCOR [Concomitant]
  9. ASPIRIN [Concomitant]
  10. PROTONIX [Concomitant]
  11. ZYLOPRIM [Concomitant]
  12. PHOSLO [Concomitant]
  13. XANAX [Concomitant]

REACTIONS (1)
  - MYOCARDIAL INFARCTION [None]
